FAERS Safety Report 6314229-9 (Version None)
Quarter: 2009Q3

REPORT INFORMATION
  Report Type: 
  Country: None (occurrence: None)
  Receive Date: 20090817
  Receipt Date: 20090812
  Transmission Date: 20100115
  Serious: Yes (Life-Threatening, Other)
  Sender: FDA-Public Use
  Company Number: 2009TJ0182

PATIENT
  Age: 54 Year
  Sex: Female
  Weight: 48.5349 kg

DRUGS (11)
  1. TWINJECT 0.3 [Suspect]
     Indication: ANAPHYLACTIC REACTION
     Dosage: 0.3MG, AS NEEDED
     Dates: start: 20090809, end: 20090809
  2. AMOXICILLIN [Concomitant]
  3. MUCINEX [Concomitant]
  4. PROVENTIL GENTLEHALER [Concomitant]
  5. SYMBICORT [Concomitant]
  6. LEVOXYL [Concomitant]
  7. ALLEGRA [Concomitant]
  8. BUSPAR [Concomitant]
  9. BACLOFEN [Concomitant]
  10. FLONASE [Concomitant]
  11. VYTORIN [Concomitant]

REACTIONS (4)
  - CYANOSIS [None]
  - INJECTION SITE HAEMATOMA [None]
  - PERIPHERAL COLDNESS [None]
  - WRONG TECHNIQUE IN DRUG USAGE PROCESS [None]
